FAERS Safety Report 19476803 (Version 1)
Quarter: 2021Q2

REPORT INFORMATION
  Report Type: Report from Study
  Country: PA (occurrence: PA)
  Receive Date: 20210630
  Receipt Date: 20210630
  Transmission Date: 20210717
  Serious: Yes (Disabling)
  Sender: FDA-Public Use
  Company Number: PHHY2017PA031597

PATIENT
  Age: 65 Year
  Sex: Female
  Weight: 53.97 kg

DRUGS (2)
  1. EXFORGE [Suspect]
     Active Substance: AMLODIPINE BESYLATE\VALSARTAN
     Dosage: UNK
     Route: 065
     Dates: start: 2007, end: 2020
  2. EXFORGE [Suspect]
     Active Substance: AMLODIPINE BESYLATE\VALSARTAN
     Indication: PRODUCT USED FOR UNKNOWN INDICATION
     Dosage: (AMLODIPINE 5 MG, VALSARTAN 160 MG)
     Route: 065

REACTIONS (4)
  - Weight decreased [Unknown]
  - Hepatic steatosis [Unknown]
  - Ischaemia [Unknown]
  - Hypoacusis [Unknown]

NARRATIVE: CASE EVENT DATE: 201603
